FAERS Safety Report 12078624 (Version 2)
Quarter: 2016Q1

REPORT INFORMATION
  Report Type: Spontaneous
  Country: KR (occurrence: KR)
  Receive Date: 20160216
  Receipt Date: 20160301
  Transmission Date: 20160526
  Serious: Yes (Life-Threatening, Other)
  Sender: FDA-Public Use
  Company Number: KR-009507513-1602KOR004948

PATIENT
  Age: 64 Year
  Sex: Male

DRUGS (16)
  1. AMANTADINE [Concomitant]
     Active Substance: AMANTADINE
     Dosage: 200 MG, QD
  2. CARBIDOPA (+) LEVODOPA [Suspect]
     Active Substance: CARBIDOPA\LEVODOPA
     Indication: NEUROLOGICAL REHABILITATION
     Dosage: 37.5/375 MG, QD
     Route: 048
  3. CARBIDOPA (+) LEVODOPA [Suspect]
     Active Substance: CARBIDOPA\LEVODOPA
     Dosage: 50/500 MG, ON THE 15TH DAY OF ADMISSION
     Route: 048
  4. CARBIDOPA (+) LEVODOPA [Suspect]
     Active Substance: CARBIDOPA\LEVODOPA
     Dosage: 25/250 MG, QD
     Route: 048
  5. ROPINIROLE. [Concomitant]
     Active Substance: ROPINIROLE
     Indication: NEUROLOGICAL REHABILITATION
     Dosage: 0.25 MG, QD
  6. ROPINIROLE. [Concomitant]
     Active Substance: ROPINIROLE
     Dosage: 0.5 MG, QD
  7. BROMOCRIPTINE [Concomitant]
     Active Substance: BROMOCRIPTINE
     Indication: NEUROLOGICAL REHABILITATION
     Dosage: 2.5 MG, QD
  8. METHYLPHENIDATE. [Concomitant]
     Active Substance: METHYLPHENIDATE
     Dosage: 5 MG, QD
  9. VENLAFAXINE HYDROCHLORIDE. [Concomitant]
     Active Substance: VENLAFAXINE HYDROCHLORIDE
     Indication: NEUROLOGICAL REHABILITATION
     Dosage: 37.5 MG, QD
  10. THERAPY UNSPECIFIED [Suspect]
     Active Substance: UNSPECIFIED INGREDIENT
     Dosage: UNK
  11. DONEPEZIL. [Concomitant]
     Active Substance: DONEPEZIL
     Indication: NEUROLOGICAL REHABILITATION
     Dosage: 5 MG, QD
  12. TIANEPTINE [Concomitant]
     Active Substance: TIANEPTINE
     Indication: NEUROLOGICAL REHABILITATION
     Dosage: 37.5 MG, QD
  13. ROPINIROLE. [Concomitant]
     Active Substance: ROPINIROLE
     Dosage: 0.625 MG, QD
  14. METHYLPHENIDATE. [Concomitant]
     Active Substance: METHYLPHENIDATE
     Indication: NEUROLOGICAL REHABILITATION
     Dosage: 20 MG, QD
  15. AMANTADINE [Concomitant]
     Active Substance: AMANTADINE
     Indication: NEUROLOGICAL REHABILITATION
     Dosage: 300 MG, QD
  16. ROPINIROLE. [Concomitant]
     Active Substance: ROPINIROLE
     Dosage: 0.75 MG, QD SINCE THE 13TH DAY OF ADMISSION

REACTIONS (2)
  - Serotonin syndrome [Recovered/Resolved]
  - Product use issue [Unknown]
